FAERS Safety Report 13823362 (Version 2)
Quarter: 2017Q3

REPORT INFORMATION
  Report Type: Spontaneous
  Country: IT (occurrence: IT)
  Receive Date: 20170802
  Receipt Date: 20170905
  Transmission Date: 20171127
  Serious: Yes (Other)
  Sender: FDA-Public Use
  Company Number: IT-BRISTOL-MYERS SQUIBB COMPANY-BMS-2017-066462

PATIENT
  Age: 69 Year
  Sex: Female
  Weight: 40 kg

DRUGS (4)
  1. DELTACORTENE [Concomitant]
     Active Substance: PREDNISONE
     Indication: INFLAMMATORY PAIN
     Dosage: 25 MG, UNK
     Route: 048
     Dates: start: 20170426, end: 20170428
  2. CO-EFFERALGAN [Concomitant]
     Active Substance: ACETAMINOPHEN\CODEINE PHOSPHATE
     Indication: INFLAMMATORY PAIN
     Dosage: UNK
     Route: 065
     Dates: start: 20170426, end: 20170428
  3. YERVOY [Suspect]
     Active Substance: IPILIMUMAB
     Indication: METASTATIC MALIGNANT MELANOMA
     Dosage: 3 MG/KG, QCYCLE
     Route: 042
     Dates: start: 20170428
  4. TORADOL [Concomitant]
     Active Substance: KETOROLAC TROMETHAMINE
     Indication: INFLAMMATORY PAIN
     Dosage: UNK
     Route: 065
     Dates: start: 20170426, end: 20170428

REACTIONS (1)
  - Endocrine disorder [Unknown]

NARRATIVE: CASE EVENT DATE: 20170519
